FAERS Safety Report 7677152-3 (Version None)
Quarter: 2011Q3

REPORT INFORMATION
  Report Type: 
  Country: None (occurrence: None)
  Receive Date: 20110811
  Receipt Date: 20110804
  Transmission Date: 20111222
  Serious: Yes (Hospitalization)
  Sender: FDA-Public Use
  Company Number: IT-MPIJNJ-2011-03178

PATIENT

DRUGS (1)
  1. VELCADE [Suspect]
     Indication: MULTIPLE MYELOMA
     Dosage: 2.25 MG, CYCLIC
     Route: 042
     Dates: start: 20110118, end: 20110211

REACTIONS (5)
  - PULMONARY EMBOLISM [None]
  - SYNCOPE [None]
  - LARGE INTESTINE PERFORATION [None]
  - DIVERTICULITIS [None]
  - PULMONARY INFARCTION [None]
